FAERS Safety Report 17657078 (Version 6)
Quarter: 2020Q3

REPORT INFORMATION
  Report Type: Report from Study
  Country: US (occurrence: US)
  Receive Date: 20200410
  Receipt Date: 20200804
  Transmission Date: 20201102
  Serious: Yes (Hospitalization, Other)
  Sender: FDA-Public Use
  Company Number: US-PFIZER INC-2020140383

PATIENT
  Age: 2 Year
  Sex: Male
  Weight: 12.6 kg

DRUGS (4)
  1. NEULASTA [Suspect]
     Active Substance: PEGFILGRASTIM
     Indication: NEUROBLASTOMA
     Dosage: 1.3 MG, ONCE (24 HOURS AFTER COMPLETION OF LAST DOSE OF CHEMOTHERAPY ON ARM E INDUCTION CYCLE 3)
     Route: 058
     Dates: start: 20200313, end: 20200313
  2. CISPLATIN. [Suspect]
     Active Substance: CISPLATIN
     Indication: NEUROBLASTOMA
     Dosage: 34 MG, EVERY 24 HOURS AT 78 ML/HR OVER 4 HOURS ON DAYS 1 ? 3 OF ARM E INDUCTION CYCLE 3
     Route: 042
     Dates: start: 20200310, end: 20200312
  3. VP?16 [Suspect]
     Active Substance: ETOPOSIDE
     Indication: NEUROBLASTOMA
     Dosage: 112 MG, EVERY 24 HOURS AT 127.8 ML/HR OVER 2 HOURS ON DAYS 1 ? 3 OF ARM E INDUCTION CYCLE 3
     Route: 042
     Dates: start: 20200309, end: 20200311
  4. CRIZOTINIB [Suspect]
     Active Substance: CRIZOTINIB
     Indication: NEUROBLASTOMA
     Dosage: 120 MG, 2X/DAY
     Route: 048
     Dates: start: 20200309, end: 20200323

REACTIONS (2)
  - Depressed level of consciousness [Recovered/Resolved]
  - Hypokalaemia [Recovered/Resolved]

NARRATIVE: CASE EVENT DATE: 20200316
